FAERS Safety Report 18744622 (Version 1)
Quarter: 2021Q1

REPORT INFORMATION
  Report Type: Spontaneous
  Country: IL (occurrence: IL)
  Receive Date: 20210115
  Receipt Date: 20210115
  Transmission Date: 20210419
  Serious: Yes (Life-Threatening, Hospitalization)
  Sender: FDA-Public Use
  Company Number: IL-B.I. PHARMACEUTICALS,INC./RIDGEFIELD-2021-BI-075221

PATIENT
  Age: 53 Year
  Sex: Male

DRUGS (4)
  1. SIMVASTATINE TEVA [Concomitant]
  2. JARDIANCE DUO [Suspect]
     Active Substance: EMPAGLIFLOZIN\METFORMIN HYDROCHLORIDE
     Indication: DIABETES MELLITUS
     Dosage: 12.5/1000 TWICE A DAY
     Dates: start: 20190618
  3. VICTOZA [Concomitant]
     Active Substance: LIRAGLUTIDE
  4. NOVONORM [Concomitant]
     Active Substance: REPAGLINIDE

REACTIONS (3)
  - COVID-19 [Unknown]
  - Respiratory disorder [Unknown]
  - Dyspnoea [Unknown]

NARRATIVE: CASE EVENT DATE: 20201226
